FAERS Safety Report 5050919-6 (Version None)
Quarter: 2006Q3

REPORT INFORMATION
  Report Type: 
  Country: None (occurrence: None)
  Receive Date: 20060710
  Receipt Date: 20060628
  Transmission Date: 20061208
  Serious: Yes (Death, Hospitalization, Other)
  Sender: FDA-Public Use
  Company Number: 215054

PATIENT
  Age: 66 Year
  Sex: Male

DRUGS (2)
  1. EFALIZUMAB (EFALIZUMAB) PWDR + SOLVENT, INJECTION SOLN, 125MG [Suspect]
     Indication: PSORIASIS
     Dosage: 1 MG/KG, 1/WEEK, SUBCUTANEOUS
     Route: 058
     Dates: start: 20050419, end: 20050526
  2. ENALAPRIL MALEATE [Concomitant]

REACTIONS (22)
  - ABNORMAL BEHAVIOUR [None]
  - ACUTE PRERENAL FAILURE [None]
  - AUTOIMMUNE DISORDER [None]
  - DIALYSIS [None]
  - GAIT DISTURBANCE [None]
  - HALLUCINATION [None]
  - HEADACHE [None]
  - INFLUENZA LIKE ILLNESS [None]
  - LEUKOCYTOSIS [None]
  - LOBAR PNEUMONIA [None]
  - LYMPHADENOPATHY [None]
  - MENINGITIS [None]
  - MENINGOENCEPHALITIS BACTERIAL [None]
  - MOTOR DYSFUNCTION [None]
  - MYALGIA [None]
  - NERVOUS SYSTEM DISORDER [None]
  - PROTEINURIA [None]
  - PSYCHOMOTOR HYPERACTIVITY [None]
  - RENAL FAILURE [None]
  - SEPSIS [None]
  - SOMNOLENCE [None]
  - TOOTH ABSCESS [None]
